FAERS Safety Report 8998252 (Version 2)
Quarter: 2013Q1

REPORT INFORMATION
  Report Type: Spontaneous
  Country: US (occurrence: US)
  Receive Date: 20130104
  Receipt Date: 20130107
  Transmission Date: 20140127
  Serious: Yes (Other)
  Sender: FDA-Public Use
  Company Number: US-PFIZER INC-2013000094

PATIENT
  Age: 80 Year
  Sex: Male
  Weight: 74.83 kg

DRUGS (10)
  1. CELEBREX [Suspect]
     Indication: PAIN
     Dosage: 200 MG, 1X/DAY
     Route: 048
     Dates: start: 20121201
  2. ACETYLSALICYLIC ACID [Concomitant]
     Indication: PAIN
     Dosage: 81 MG, UNK
  3. TYLENOL [Concomitant]
     Indication: PAIN
     Dosage: 325 MG, UNK
     Route: 048
  4. ZINC [Concomitant]
     Dosage: 220 MG, UNK
  5. PLAVIX [Concomitant]
     Dosage: 75 MG, UNK
  6. COLACE [Concomitant]
     Dosage: 100 MG, UNK
  7. METOPROLOL [Concomitant]
     Dosage: 12.5 MG, 1X/DAY
  8. VITAMIN C [Concomitant]
     Dosage: 500 MG, UNK
  9. MAGNESIUM HYDROXIDE [Concomitant]
     Dosage: UNK
  10. DULCOLAX [Concomitant]
     Dosage: 10 MG, UNK

REACTIONS (6)
  - Hallucination [Not Recovered/Not Resolved]
  - Obstructive uropathy [Unknown]
  - Nephrolithiasis [Unknown]
  - Aggression [Not Recovered/Not Resolved]
  - Personality change [Not Recovered/Not Resolved]
  - Fear of death [Not Recovered/Not Resolved]
